FAERS Safety Report 8571693-2 (Version None)
Quarter: 2012Q3

REPORT INFORMATION
  Report Type: 
  Country: None (occurrence: None)
  Receive Date: 20120806
  Receipt Date: 20120727
  Transmission Date: 20120928
  Serious: Yes (Disabling)
  Sender: FDA-Public Use
  Company Number: US-JNJFOC-20120705532

PATIENT
  Sex: Female

DRUGS (6)
  1. AMITRIPTYLINE HCL [Concomitant]
     Indication: HYPERSOMNIA
  2. INDOCINE [Concomitant]
     Indication: ANTIINFLAMMATORY THERAPY
  3. REMICADE [Suspect]
     Indication: PRODUCT USED FOR UNKNOWN INDICATION
     Dosage: FIRST DOSE
     Route: 042
     Dates: start: 20051001, end: 20120604
  4. PARAFON FORTE [Concomitant]
     Indication: MUSCLE RELAXANT THERAPY
  5. LISINOPRIL [Concomitant]
     Indication: BLOOD PRESSURE
  6. PREDNISONE [Concomitant]
     Indication: JOINT SWELLING

REACTIONS (2)
  - MIGRAINE WITH AURA [None]
  - OPTIC NEURITIS [None]
